FAERS Safety Report 10096785 (Version 1)
Quarter: 2014Q2

REPORT INFORMATION
  Report Type: Spontaneous
  Country: US (occurrence: US)
  Receive Date: 20140422
  Receipt Date: 20140422
  Transmission Date: 20141212
  Serious: Yes (Other)
  Sender: FDA-Public Use
  Company Number: US-ELI_LILLY_AND_COMPANY-US201404004414

PATIENT
  Age: 52 Year
  Sex: Male

DRUGS (1)
  1. HUMALOG LISPRO [Suspect]
     Indication: PRODUCT USED FOR UNKNOWN INDICATION
     Dosage: UNK
     Route: 058

REACTIONS (8)
  - Hyperglycaemia [Recovered/Resolved]
  - Haematemesis [Unknown]
  - Hypotension [Unknown]
  - Malaise [Unknown]
  - Epistaxis [Unknown]
  - Diarrhoea [Unknown]
  - Dehydration [Unknown]
  - Infusion site discomfort [Unknown]
